FAERS Safety Report 7422947-4 (Version None)
Quarter: 2011Q2

REPORT INFORMATION
  Report Type: 
  Country: None (occurrence: None)
  Receive Date: 20110419
  Receipt Date: 20110407
  Transmission Date: 20111010
  Serious: Yes (Hospitalization)
  Sender: FDA-Public Use
  Company Number: FR-JNJFOC-20110403543

PATIENT
  Age: 30 Year
  Sex: Female

DRUGS (11)
  1. FLUINDIONE [Suspect]
     Indication: PRODUCT USED FOR UNKNOWN INDICATION
     Route: 048
  2. EPOETIN BETA [Concomitant]
     Route: 065
  3. KARDEGIC [Concomitant]
     Route: 065
  4. CORTANCYL [Concomitant]
     Route: 065
  5. LUTERAN [Concomitant]
     Route: 065
  6. PLAQUENIL [Suspect]
     Indication: SYSTEMIC LUPUS ERYTHEMATOSUS
     Route: 048
  7. KALEORID [Concomitant]
     Route: 065
  8. TENORMIN [Concomitant]
     Route: 065
  9. FOLIC ACID [Concomitant]
     Route: 065
  10. TAVANIC [Suspect]
     Indication: PRODUCT USED FOR UNKNOWN INDICATION
     Route: 048
  11. SINTROM [Concomitant]
     Route: 065

REACTIONS (2)
  - TOXIC SKIN ERUPTION [None]
  - RASH MACULO-PAPULAR [None]
